FAERS Safety Report 14927427 (Version 1)
Quarter: 2018Q2

REPORT INFORMATION
  Report Type: Spontaneous
  Country: US (occurrence: US)
  Receive Date: 20180523
  Receipt Date: 20180523
  Transmission Date: 20180711
  Serious: No
  Sender: FDA-Public Use
  Company Number: US-PFIZER INC-2018208605

PATIENT
  Age: 47 Year
  Sex: Female
  Weight: 77.98 kg

DRUGS (1)
  1. VENLAFAXINE HCL [Suspect]
     Active Substance: VENLAFAXINE HYDROCHLORIDE
     Dosage: 75 MG, 1X/DAY

REACTIONS (3)
  - Muscle spasms [Unknown]
  - Restless legs syndrome [Not Recovered/Not Resolved]
  - Muscle twitching [Unknown]
